FAERS Safety Report 6050513-4 (Version None)
Quarter: 2009Q1

REPORT INFORMATION
  Report Type: 
  Country: None (occurrence: None)
  Receive Date: 20090126
  Receipt Date: 20090115
  Transmission Date: 20090719
  Serious: Yes (Hospitalization, Other)
  Sender: FDA-Public Use
  Company Number: PHHY2008GB32827

PATIENT
  Sex: Male

DRUGS (6)
  1. CLOZARIL [Suspect]
     Indication: SCHIZOPHRENIA
     Dosage: 400 MG/DAY
     Route: 048
     Dates: start: 20081111
  2. CLOZARIL [Suspect]
     Dosage: 175/250MG
  3. CLOZARIL [Suspect]
     Dosage: 12.5 MG
     Dates: start: 20090108
  4. CLOZARIL [Suspect]
     Dosage: 50 MG, QD
  5. SERTRALINE [Concomitant]
     Indication: DEPRESSION
     Dosage: 50 MG/DAY
     Route: 048
     Dates: start: 20081106
  6. LACTULOSE [Concomitant]
     Dosage: 10 ML/DAY
     Route: 048
     Dates: start: 20081125

REACTIONS (9)
  - CONVULSION [None]
  - DYSKINESIA [None]
  - FALL [None]
  - HEART RATE INCREASED [None]
  - HEART RATE IRREGULAR [None]
  - NEUTROPHIL COUNT INCREASED [None]
  - OVERDOSE [None]
  - TACHYCARDIA [None]
  - WHITE BLOOD CELL COUNT INCREASED [None]
